FAERS Safety Report 7961101-4 (Version None)
Quarter: 2011Q4

REPORT INFORMATION
  Report Type: 
  Country: None (occurrence: None)
  Receive Date: 20111201
  Receipt Date: 20111201
  Transmission Date: 20120403
  Serious: No
  Sender: FDA-Public Use
  Company Number: None

PATIENT
  Sex: Male
  Weight: 104.3 kg

DRUGS (1)
  1. ENBREL [Suspect]
     Indication: PSORIASIS
     Dosage: 50MG BIW SQ
     Route: 058
     Dates: start: 20111028, end: 20111110

REACTIONS (2)
  - SUNBURN [None]
  - PHOTOSENSITIVITY REACTION [None]
